FAERS Safety Report 18860954 (Version 1)
Quarter: 2021Q1

REPORT INFORMATION
  Report Type: Spontaneous
  Country: GB (occurrence: GB)
  Receive Date: 20210208
  Receipt Date: 20210208
  Transmission Date: 20210420
  Serious: Yes (Other)
  Sender: FDA-Public Use
  Company Number: GB-PERRIGO-21GB001399

PATIENT

DRUGS (2)
  1. RIVAROXABAN [Concomitant]
     Active Substance: RIVAROXABAN
     Indication: EMBOLISM
     Dosage: UNK, QD
     Route: 065
  2. NIQUITIN [Suspect]
     Active Substance: NICOTINE
     Indication: PRODUCT USED FOR UNKNOWN INDICATION
     Dosage: 1 EVERY 2 HOURS
     Route: 048
     Dates: start: 201701

REACTIONS (3)
  - Incorrect product administration duration [Unknown]
  - Drug dependence [Unknown]
  - Nicotine dependence [Unknown]

NARRATIVE: CASE EVENT DATE: 201701
